FAERS Safety Report 10907348 (Version 1)
Quarter: 2015Q1

REPORT INFORMATION
  Report Type: Spontaneous
  Country: US (occurrence: None)
  Receive Date: 20150309
  Receipt Date: 20150309
  Transmission Date: 20150721
  Serious: Yes (Hospitalization)
  Sender: FDA-Public Use
  Company Number: None

PATIENT
  Age: 42 Year
  Sex: Female

DRUGS (11)
  1. SOLU-MEDROL [Concomitant]
     Active Substance: METHYLPREDNISOLONE SODIUM SUCCINATE
  2. PREDNISONE. [Concomitant]
     Active Substance: PREDNISONE
  3. AMPHETAMINE SALT COMBO [Concomitant]
  4. LOVENOX [Concomitant]
     Active Substance: ENOXAPARIN SODIUM
  5. OXYBUTYNIN [Concomitant]
     Active Substance: OXYBUTYNIN
  6. PAROXETINE [Concomitant]
     Active Substance: PAROXETINE\PAROXETINE HYDROCHLORIDE
  7. BACLOFEN. [Concomitant]
     Active Substance: BACLOFEN
  8. AMPYRA [Suspect]
     Active Substance: DALFAMPRIDINE
     Indication: MULTIPLE SCLEROSIS
     Route: 048
     Dates: start: 201007
  9. COPAXONE [Concomitant]
     Active Substance: GLATIRAMER ACETATE
  10. BUPROPION [Concomitant]
     Active Substance: BUPROPION
  11. WARFARIN [Concomitant]
     Active Substance: WARFARIN

REACTIONS (1)
  - Urinary tract infection [None]

NARRATIVE: CASE EVENT DATE: 20140522
